FAERS Safety Report 5619157-X (Version None)
Quarter: 2008Q1

REPORT INFORMATION
  Report Type: 
  Country: None (occurrence: None)
  Receive Date: 20080205
  Receipt Date: 20080122
  Transmission Date: 20080703
  Serious: No
  Sender: FDA-Public Use
  Company Number: US022310

PATIENT
  Age: 1 Year
  Sex: Female

DRUGS (1)
  1. ACTIQ [Suspect]
     Dosage: ONCE BUCCAL
     Route: 002
     Dates: start: 20080122, end: 20080122

REACTIONS (1)
  - ACCIDENTAL DRUG INTAKE BY CHILD [None]
